FAERS Safety Report 7653949-0 (Version None)
Quarter: 2011Q3

REPORT INFORMATION
  Report Type: 
  Country: None (occurrence: None)
  Receive Date: 20110803
  Receipt Date: 20110725
  Transmission Date: 20111222
  Serious: Yes (Hospitalization, Other)
  Sender: FDA-Public Use
  Company Number: GR-JNJFOC-20100905787

PATIENT
  Age: 62 Year
  Sex: Male
  Weight: 65 kg

DRUGS (3)
  1. INFLIXIMAB, RECOMBINANT [Suspect]
     Indication: COLITIS ULCERATIVE
     Route: 042
     Dates: start: 20100805
  2. SULFASALAZINE [Concomitant]
     Indication: COLITIS ULCERATIVE
     Dates: start: 20100701, end: 20100914
  3. AZATHIOPRINE SODIUM [Concomitant]
     Indication: COLITIS ULCERATIVE
     Dates: start: 20100601, end: 20100914

REACTIONS (7)
  - TREMOR [None]
  - PYREXIA [None]
  - BLOOD MAGNESIUM DECREASED [None]
  - MENTAL STATUS CHANGES [None]
  - CEREBRAL ISCHAEMIA [None]
  - ERYTHEMA [None]
  - CEREBRAL ARTERIOSCLEROSIS [None]
